FAERS Safety Report 10724580 (Version 2)
Quarter: 2015Q2

REPORT INFORMATION
  Report Type: Spontaneous
  Country: SE (occurrence: SE)
  Receive Date: 20150120
  Receipt Date: 20150430
  Transmission Date: 20150821
  Serious: Yes (Other)
  Sender: FDA-Public Use
  Company Number: SE-MYLANLABS-2015M1001231

PATIENT

DRUGS (1)
  1. CYTARABINE. [Suspect]
     Active Substance: CYTARABINE
     Indication: ACUTE MYELOID LEUKAEMIA
     Dosage: UNK UNK, CYCLE
     Dates: end: 2013

REACTIONS (3)
  - Fatigue [Unknown]
  - Brain injury [Unknown]
  - Cerebellar cognitive affective syndrome [Unknown]

NARRATIVE: CASE EVENT DATE: 2013
